FAERS Safety Report 7744682-5 (Version None)
Quarter: 2011Q3

REPORT INFORMATION
  Report Type: 
  Country: None (occurrence: None)
  Receive Date: 20110912
  Receipt Date: 20110908
  Transmission Date: 20111222
  Serious: Yes (Death)
  Sender: FDA-Public Use
  Company Number: PHHY2011FR80231

PATIENT
  Sex: Male

DRUGS (6)
  1. GLEEVEC [Suspect]
     Dosage: 300 MG, QD
     Dates: start: 20060901, end: 20080901
  2. HYDREA [Concomitant]
     Indication: CHRONIC MYELOID LEUKAEMIA
     Dosage: UNK
     Dates: start: 20030301, end: 20030701
  3. GLEEVEC [Suspect]
     Indication: CHRONIC MYELOID LEUKAEMIA
     Dosage: 400 MG, QD
     Dates: start: 20030701, end: 20060901
  4. SPRYCEL [Concomitant]
     Indication: CHRONIC MYELOID LEUKAEMIA
     Dosage: UNK
     Dates: start: 20080901, end: 20081001
  5. TASIGNA [Suspect]
     Dosage: UNK
     Dates: start: 20081001, end: 20090301
  6. GLEEVEC [Suspect]
     Dosage: 400 MG, QD
     Dates: start: 20090301, end: 20110301

REACTIONS (2)
  - BRONCHIAL CARCINOMA [None]
  - NEOPLASM MALIGNANT [None]
